FAERS Safety Report 8195838 (Version 5)
Quarter: 2013Q4

REPORT INFORMATION
  Report Type: Spontaneous
  Country: US (occurrence: None)
  Receive Date: 20111024
  Receipt Date: 20131226
  Transmission Date: 20140711
  Serious: Yes (Other)
  Sender: FDA-Public Use
  Company Number: PHHY2011US65099

PATIENT
  Age: 39 Year
  Sex: Male
  Weight: 68.9 kg

DRUGS (1)
  1. TASIGNA [Suspect]
     Indication: CHRONIC MYELOID LEUKAEMIA
     Route: 048
     Dates: start: 201011, end: 20110329

REACTIONS (6)
  - Pancytopenia [None]
  - Wrong technique in drug usage process [None]
  - Anaemia [None]
  - Leukopenia [None]
  - Neutropenia [None]
  - Thrombocytopenia [None]
